FAERS Safety Report 8625124 (Version 3)
Quarter: 2012Q4

REPORT INFORMATION
  Report Type: 
  Country: US (occurrence: US)
  Receive Date: 20120620
  Receipt Date: 20121129
  Transmission Date: 20130627
  Serious: Yes (Other)
  Sender: FDA-Public Use
  Company Number: US-GLAXOSMITHKLINE-A0981592A

PATIENT
  Age: 50 Year
  Sex: Female

DRUGS (3)
  1. ADVAIR [Suspect]
     Indication: ASTHMA
     Dosage: 1PUFF Twice per day
     Route: 055
     Dates: start: 200706
  2. VERAPAMIL [Concomitant]
  3. OMEPRAZOLE [Concomitant]

REACTIONS (3)
  - Asthma [Unknown]
  - Drug ineffective [Unknown]
  - Product quality issue [Unknown]
